FAERS Safety Report 20961156 (Version 8)
Quarter: 2023Q2

REPORT INFORMATION
  Report Type: Spontaneous
  Country: US (occurrence: US)
  Receive Date: 20220615
  Receipt Date: 20230622
  Transmission Date: 20230722
  Serious: No
  Sender: FDA-Public Use
  Company Number: US-GLAXOSMITHKLINE-US2022092425

PATIENT
  Sex: Female

DRUGS (7)
  1. ZEJULA [Suspect]
     Active Substance: NIRAPARIB
     Indication: Ovarian cancer
     Dosage: 300 MG, QD
     Dates: start: 20220528
  2. ZEJULA [Suspect]
     Active Substance: NIRAPARIB
     Dosage: 300 MG, QD
  3. ZEJULA [Suspect]
     Active Substance: NIRAPARIB
     Dosage: 200 MG, QD
     Route: 048
  4. ZEJULA [Suspect]
     Active Substance: NIRAPARIB
     Dosage: 200 MG, QD
     Route: 048
  5. ZEJULA [Suspect]
     Active Substance: NIRAPARIB
     Dosage: 200 MG, QD
     Route: 048
  6. ZEJULA [Suspect]
     Active Substance: NIRAPARIB
     Dosage: 200 MG, QD
     Route: 048
  7. ZEJULA [Suspect]
     Active Substance: NIRAPARIB
     Dosage: 200 MG, QD
     Route: 048

REACTIONS (32)
  - Nausea [Not Recovered/Not Resolved]
  - Pruritus [Unknown]
  - Hypertension [Not Recovered/Not Resolved]
  - Heart rate increased [Unknown]
  - Sleep disorder due to a general medical condition [Unknown]
  - Headache [Unknown]
  - Vision blurred [Unknown]
  - Platelet count decreased [Unknown]
  - Red blood cell count decreased [Unknown]
  - White blood cell count decreased [Not Recovered/Not Resolved]
  - Loss of personal independence in daily activities [Unknown]
  - Drug intolerance [Unknown]
  - Hypersomnia [Unknown]
  - Anaemia [Not Recovered/Not Resolved]
  - Hepatic enzyme increased [Unknown]
  - Stomatitis [Recovered/Resolved]
  - Muscle strain [Unknown]
  - Muscle spasms [Unknown]
  - Blood potassium increased [Unknown]
  - Fatigue [Unknown]
  - Contusion [Unknown]
  - Dyspnoea [Unknown]
  - Myopathy [Unknown]
  - Cough [Unknown]
  - Paraesthesia [Unknown]
  - Malaise [Unknown]
  - Constipation [Unknown]
  - Back pain [Unknown]
  - Abdominal discomfort [Unknown]
  - Photosensitivity reaction [Unknown]
  - Adverse drug reaction [Unknown]
  - Product dose omission issue [Unknown]
